FAERS Safety Report 10903372 (Version 1)
Quarter: 2015Q1

REPORT INFORMATION
  Report Type: Spontaneous
  Country: US (occurrence: None)
  Receive Date: 20150304
  Receipt Date: 20150304
  Transmission Date: 20150721
  Serious: Yes (Hospitalization, Other)
  Sender: FDA-Public Use
  Company Number: 2015HINLIT0192

PATIENT
  Age: 60 Year
  Sex: Female

DRUGS (4)
  1. LITHIUM [Suspect]
     Active Substance: LITHIUM CARBONATE
     Indication: PRODUCT USED FOR UNKNOWN INDICATION
     Dates: start: 1983
  2. RISPERIDONE. [Concomitant]
     Active Substance: RISPERIDONE
  3. QUETIAPINE [Concomitant]
     Active Substance: QUETIAPINE
  4. CARBAMAZEPINE. [Concomitant]
     Active Substance: CARBAMAZEPINE

REACTIONS (15)
  - Tubulointerstitial nephritis [None]
  - Abdominal pain [None]
  - Hypernatraemia [None]
  - Nephrogenic diabetes insipidus [None]
  - Rash [None]
  - Volvulus [None]
  - Major depression [None]
  - Hypercalcaemia [None]
  - Hypothyroidism [None]
  - Myxofibrosarcoma [None]
  - Chronic kidney disease [None]
  - Sedation [None]
  - Hyperparathyroidism primary [None]
  - Toxicity to various agents [None]
  - Hyperthyroidism [None]
